FAERS Safety Report 7906681-X (Version None)
Quarter: 2011Q4

REPORT INFORMATION
  Report Type: 
  Country: None (occurrence: None)
  Receive Date: 20111110
  Receipt Date: 20111104
  Transmission Date: 20120403
  Serious: Yes (Hospitalization, Other)
  Sender: FDA-Public Use
  Company Number: DE-AMGEN-DEUCT2011051866

PATIENT
  Age: 70 Year
  Sex: Male

DRUGS (4)
  1. CISPLATIN [Concomitant]
     Dosage: 60 MG/M2, UNK
     Dates: start: 20101207
  2. EPIRUBICIN [Concomitant]
     Dosage: 50 MG/M2, UNK
     Dates: start: 20101207
  3. CAPECITABINE [Concomitant]
     Dosage: 625 MG/M2, UNK
     Dates: start: 20101207
  4. PANITUMUMAB [Suspect]
     Indication: GASTRIC CANCER
     Dosage: 4 MG/KG, UNK
     Dates: start: 20101207

REACTIONS (8)
  - VOMITING [None]
  - THROMBOCYTOPENIA [None]
  - DIARRHOEA [None]
  - DECREASED APPETITE [None]
  - LEUKOPENIA [None]
  - PULMONARY EMBOLISM [None]
  - NAUSEA [None]
  - GENERAL PHYSICAL HEALTH DETERIORATION [None]
